FAERS Safety Report 10189926 (Version 1)
Quarter: 2014Q2

REPORT INFORMATION
  Report Type: Spontaneous
  Country: GB (occurrence: GB)
  Receive Date: 20140522
  Receipt Date: 20140522
  Transmission Date: 20141212
  Serious: Yes (Death)
  Sender: FDA-Public Use
  Company Number: GB-WATSON-2014-10202

PATIENT
  Age: 64 Year
  Sex: Female

DRUGS (5)
  1. AZATHIOPRINE (UNKNOWN) [Suspect]
     Indication: PRODUCT USED FOR UNKNOWN INDICATION
     Dosage: UNK, UNKNOWN FREQ.
     Route: 065
  2. PREDNISOLONE (UNKNOWN) [Suspect]
     Indication: PRODUCT USED FOR UNKNOWN INDICATION
     Dosage: UNK, UNKNOWN FREQ.
     Route: 065
  3. PREDNISOLONE (UNKNOWN) [Suspect]
     Dosage: UNK UNK, UNKNOWN FREQ.; ENTERIC COATED TABLETS
     Route: 065
  4. PROGRAF [Suspect]
     Indication: PRODUCT USED FOR UNKNOWN INDICATION
     Dosage: UNK, UNKNOWN FREQ.
     Route: 065
  5. PROGRAF [Suspect]
     Dosage: UNK

REACTIONS (1)
  - Death [Fatal]
